FAERS Safety Report 21382945 (Version 3)
Quarter: 2022Q4

REPORT INFORMATION
  Report Type: Spontaneous
  Country: US (occurrence: US)
  Receive Date: 20220927
  Receipt Date: 20221220
  Transmission Date: 20230112
  Serious: No
  Sender: FDA-Public Use
  Company Number: US-SA-SAC20220921001268

PATIENT
  Age: 7 Year
  Sex: Female

DRUGS (1)
  1. DUPIXENT [Suspect]
     Active Substance: DUPILUMAB
     Indication: Dermatitis atopic
     Dosage: 200 MG FREQUENCY: OTHER
     Route: 058
     Dates: start: 202209

REACTIONS (7)
  - Headache [Unknown]
  - Hypoaesthesia [Unknown]
  - Chest discomfort [Unknown]
  - Palpitations [Unknown]
  - Fatigue [Unknown]
  - Rash [Unknown]
  - Therapeutic response decreased [Unknown]

NARRATIVE: CASE EVENT DATE: 20220101
